FAERS Safety Report 8891201 (Version 1)
Quarter: 2012Q4

REPORT INFORMATION
  Report Type: 
  Country: US (occurrence: US)
  Receive Date: 20121107
  Receipt Date: 20121107
  Transmission Date: 20130627
  Serious: No
  Sender: FDA-Public Use
  Company Number: US-ASTRAZENECA-2012SE82052

PATIENT
  Sex: Male

DRUGS (2)
  1. NEXIUM [Suspect]
     Route: 048
     Dates: start: 2010
  2. NEXIUM [Suspect]
     Route: 048
     Dates: start: 20121001

REACTIONS (2)
  - Abnormal faeces [Unknown]
  - Pruritus [Unknown]
